FAERS Safety Report 8130414-8 (Version None)
Quarter: 2012Q1

REPORT INFORMATION
  Report Type: 
  Country: None (occurrence: None)
  Receive Date: 20120210
  Receipt Date: 20120202
  Transmission Date: 20120608
  Serious: Yes (Hospitalization)
  Sender: FDA-Public Use
  Company Number: IL-ABBOTT-12P-082-0902975-00

PATIENT
  Sex: Female

DRUGS (5)
  1. ANTIHYPERTENSIVE DRUG [Concomitant]
     Indication: HYPERTENSION
     Route: 048
     Dates: start: 20070101
  2. MULTI-VITAMIN [Concomitant]
     Indication: PRODUCT USED FOR UNKNOWN INDICATION
     Route: 048
  3. SYNTHROID [Suspect]
     Indication: GOITRE
     Route: 048
     Dates: start: 19710101
  4. CALCIUM+VIT D [Concomitant]
     Indication: PRODUCT USED FOR UNKNOWN INDICATION
     Route: 048
  5. SYNTHROID [Suspect]
     Indication: PROPHYLAXIS
     Dates: start: 20080101

REACTIONS (1)
  - THYROID NEOPLASM [None]
